FAERS Safety Report 13947358 (Version 1)
Quarter: 2017Q3

REPORT INFORMATION
  Report Type: Spontaneous
  Country: US (occurrence: US)
  Receive Date: 20170908
  Receipt Date: 20170908
  Transmission Date: 20171128
  Serious: Yes (Death)
  Sender: FDA-Public Use
  Company Number: US-ENDO PHARMACEUTICALS INC-2017-004744

PATIENT

DRUGS (1)
  1. KETALAR [Suspect]
     Active Substance: KETAMINE HYDROCHLORIDE
     Indication: STATUS EPILEPTICUS
     Dosage: 6 MG/KG/HOUR,INFUSION
     Route: 041

REACTIONS (2)
  - Cardiac arrest [Fatal]
  - Off label use [Unknown]
